FAERS Safety Report 9320275 (Version 3)
Quarter: 2013Q2

REPORT INFORMATION
  Report Type: Spontaneous
  Country: FR (occurrence: FR)
  Receive Date: 20130530
  Receipt Date: 20130625
  Transmission Date: 20140414
  Serious: Yes (Other)
  Sender: FDA-Public Use
  Company Number: FR-B.I. PHARMACEUTICALS,INC./RIDGEFIELD-2013-FF-01453FF

PATIENT
  Age: 79 Year
  Sex: Female

DRUGS (13)
  1. PRADAXA [Suspect]
     Indication: THROMBOSIS PROPHYLAXIS
     Dosage: 220 MG
     Route: 048
     Dates: start: 20130425, end: 20130503
  2. LASILIX [Concomitant]
  3. VASTAREL [Concomitant]
  4. KARDEGIC [Concomitant]
  5. PHYSIOTENS [Concomitant]
  6. INEXIUM [Concomitant]
  7. DIFFU K [Concomitant]
  8. TEMERIT [Concomitant]
  9. LESCOL [Concomitant]
  10. EZETROL [Concomitant]
  11. ESIDREX [Concomitant]
  12. DAFALGAN [Concomitant]
  13. INSPRA [Concomitant]

REACTIONS (1)
  - Phlebitis [Recovered/Resolved]
